FAERS Safety Report 17674353 (Version 1)
Quarter: 2020Q2

REPORT INFORMATION
  Report Type: Spontaneous
  Country: US (occurrence: US)
  Receive Date: 20200416
  Receipt Date: 20200416
  Transmission Date: 20200714
  Serious: Yes (Hospitalization, Other)
  Sender: FDA-Public Use
  Company Number: US-APOTEX-2020AP010015

PATIENT
  Age: 62 Year
  Sex: Female

DRUGS (2)
  1. FLECAINIDE [Suspect]
     Active Substance: FLECAINIDE
     Indication: ATRIAL FIBRILLATION
     Dosage: 200 MG, QD
     Route: 065
  2. GARENOXACIN [Suspect]
     Active Substance: GARENOXACIN
     Indication: ENTERITIS INFECTIOUS
     Dosage: 400 MG, QD
     Route: 065

REACTIONS (7)
  - Ventricular tachycardia [Recovered/Resolved]
  - Toxicity to various agents [Recovering/Resolving]
  - Defect conduction intraventricular [Recovered/Resolved]
  - Cardiac failure congestive [Recovering/Resolving]
  - Cardio-respiratory arrest [Recovered/Resolved]
  - Phospholipidosis [Unknown]
  - Atrial fibrillation [Recovered/Resolved]
